FAERS Safety Report 6335779-5 (Version None)
Quarter: 2009Q3

REPORT INFORMATION
  Report Type: 
  Country: None (occurrence: None)
  Receive Date: 20090828
  Receipt Date: 20090824
  Transmission Date: 20100115
  Serious: Yes (Life-Threatening, Hospitalization)
  Sender: FDA-Public Use
  Company Number: SPV1-2009-01709

PATIENT
  Age: 45 Year
  Sex: Female

DRUGS (2)
  1. ADDERALL XR 10 [Suspect]
     Indication: ATTENTION DEFICIT/HYPERACTIVITY DISORDER
     Dosage: 15 MG, 1X/DAY:QD, ORAL
     Route: 048
     Dates: start: 20090112, end: 20090601
  2. ADDERALL XR 10 [Suspect]
     Indication: DRUG USE FOR UNKNOWN INDICATION
     Dosage: 10 MG, ONCE DAILY AS REQ'D, ORAL
     Route: 048
     Dates: start: 20090225, end: 20090601

REACTIONS (3)
  - CAROTID ARTERY DISSECTION [None]
  - RETCHING [None]
  - TINNITUS [None]
